FAERS Safety Report 21700508 (Version 1)
Quarter: 2022Q4

REPORT INFORMATION
  Report Type: Spontaneous
  Country: US (occurrence: US)
  Receive Date: 20221208
  Receipt Date: 20221208
  Transmission Date: 20230113
  Serious: No
  Sender: FDA-Public Use
  Company Number: US-SA-SAC20221207000380

PATIENT
  Sex: Female

DRUGS (1)
  1. AUBAGIO [Suspect]
     Active Substance: TERIFLUNOMIDE
     Indication: Multiple sclerosis
     Dosage: TAKE 1 TABLET BY MOUTH EVERY 24 HOURS
     Route: 048
     Dates: start: 20190924

REACTIONS (1)
  - Muscle twitching [Not Recovered/Not Resolved]
